FAERS Safety Report 7090923-X (Version None)
Quarter: 2010Q4

REPORT INFORMATION
  Report Type: 
  Country: None (occurrence: None)
  Receive Date: 20101109
  Receipt Date: 20101027
  Transmission Date: 20110411
  Serious: Yes (Hospitalization)
  Sender: FDA-Public Use
  Company Number: US-ELI_LILLY_AND_COMPANY-US201008000578

PATIENT
  Sex: Female

DRUGS (2)
  1. FORTEO [Suspect]
     Indication: OSTEOPOROSIS
     Dosage: 20 UG, DAILY (1/D)
     Dates: start: 20100501, end: 20100909
  2. FORTEO [Suspect]
     Dosage: 20 UG, DAILY (1/D)
     Route: 065

REACTIONS (11)
  - BONE PAIN [None]
  - CARDIAC FAILURE CONGESTIVE [None]
  - DIARRHOEA [None]
  - DIZZINESS [None]
  - GAIT DISTURBANCE [None]
  - HAEMORRHAGE [None]
  - MUSCULAR WEAKNESS [None]
  - MYOCARDIAL INFARCTION [None]
  - NAUSEA [None]
  - TREMOR [None]
  - VOMITING [None]
